FAERS Safety Report 16609035 (Version 1)
Quarter: 2019Q3

REPORT INFORMATION
  Report Type: Spontaneous
  Country: FR (occurrence: FR)
  Receive Date: 20190722
  Receipt Date: 20190722
  Transmission Date: 20191004
  Serious: Yes (Other)
  Sender: FDA-Public Use
  Company Number: FR-PFIZER INC-2019304176

PATIENT
  Age: 77 Year
  Sex: Male
  Weight: 65 kg

DRUGS (5)
  1. GAZYVARO [Concomitant]
     Active Substance: OBINUTUZUMAB
     Dosage: UNK
  2. VFEND [Suspect]
     Active Substance: VORICONAZOLE
     Indication: INFECTION PROPHYLAXIS
     Dosage: 400 MG, 1X/DAY
     Route: 048
     Dates: start: 20190529, end: 20190605
  3. VALACICLOVIR [Concomitant]
     Active Substance: VALACYCLOVIR HYDROCHLORIDE
     Dosage: UNK
  4. ZYDELIG [Concomitant]
     Active Substance: IDELALISIB
     Dosage: UNK
  5. BACTRIM [Concomitant]
     Active Substance: SULFAMETHOXAZOLE\TRIMETHOPRIM
     Dosage: UNK

REACTIONS (6)
  - Nervousness [Not Recovered/Not Resolved]
  - Insomnia [Not Recovered/Not Resolved]
  - Balance disorder [Recovered/Resolved]
  - Hallucination, visual [Recovered/Resolved]
  - Disturbance in attention [Recovered/Resolved]
  - Photophobia [Recovered/Resolved]

NARRATIVE: CASE EVENT DATE: 20190601
